FAERS Safety Report 20125198 (Version 3)
Quarter: 2022Q1

REPORT INFORMATION
  Report Type: Spontaneous
  Country: DE (occurrence: DE)
  Receive Date: 20211129
  Receipt Date: 20220113
  Transmission Date: 20220424
  Serious: Yes (Death)
  Sender: FDA-Public Use
  Company Number: DE-ETHYPHARM-2021001407

PATIENT
  Age: 55 Year
  Sex: Female

DRUGS (2)
  1. EVEROLIMUS [Suspect]
     Active Substance: EVEROLIMUS
     Indication: Neoplasm of thymus
     Dosage: 5 MILLIGRAM
     Route: 048
  2. EVEROLIMUS [Suspect]
     Active Substance: EVEROLIMUS
     Dosage: 10 MILLIGRAM
     Route: 048

REACTIONS (4)
  - Death [Fatal]
  - Fatigue [Unknown]
  - Mucosal inflammation [Unknown]
  - Product use in unapproved indication [Unknown]
